FAERS Safety Report 8579931-7 (Version None)
Quarter: 2012Q3

REPORT INFORMATION
  Report Type: 
  Country: None (occurrence: None)
  Receive Date: 20120808
  Receipt Date: 20120726
  Transmission Date: 20120928
  Serious: Yes (Other)
  Sender: FDA-Public Use
  Company Number: US-ELI_LILLY_AND_COMPANY-US201207008185

PATIENT
  Sex: Male

DRUGS (2)
  1. PROZAC [Suspect]
     Dosage: 1 DF, UNKNOWN
  2. CYMBALTA [Suspect]
     Dosage: 1 DF, UNKNOWN

REACTIONS (4)
  - BLOOD BILIRUBIN INCREASED [None]
  - HEPATOTOXICITY [None]
  - SOMNOLENCE [None]
  - DRUG INEFFECTIVE [None]
